FAERS Safety Report 10360542 (Version 2)
Quarter: 2014Q3

REPORT INFORMATION
  Report Type: Report from Study
  Country: US (occurrence: US)
  Receive Date: 20140804
  Receipt Date: 20140804
  Transmission Date: 20150326
  Serious: Yes (Hospitalization, Other)
  Sender: FDA-Public Use
  Company Number: US-ABBVIE-14P-163-1257843-00

PATIENT
  Age: 24 Year
  Sex: Female
  Weight: 77.18 kg

DRUGS (9)
  1. HUMIRA [Suspect]
     Active Substance: ADALIMUMAB
     Dates: start: 20080221
  2. HUMIRA [Suspect]
     Active Substance: ADALIMUMAB
  3. LOSARTIN [Concomitant]
     Active Substance: LOSARTAN
  4. LOSARTIN [Concomitant]
     Active Substance: LOSARTAN
     Dosage: 1/2 TABLET
  5. HYDROMORPHONE [Concomitant]
     Active Substance: HYDROMORPHONE
     Indication: GASTROOESOPHAGEAL REFLUX DISEASE
  6. ENTOCORT [Concomitant]
     Active Substance: BUDESONIDE
     Indication: PRODUCT USED FOR UNKNOWN INDICATION
  7. HUMIRA [Suspect]
     Active Substance: ADALIMUMAB
     Indication: CROHN^S DISEASE
     Dates: start: 200702
  8. LOSARTIN [Concomitant]
     Active Substance: LOSARTAN
     Indication: BLOOD PRESSURE INCREASED
     Dosage: ABOUT ONE MONTH
     Dates: start: 2007
  9. HUMIRA [Suspect]
     Active Substance: ADALIMUMAB
     Dates: start: 201402

REACTIONS (14)
  - Nausea [Unknown]
  - Frequent bowel movements [Not Recovered/Not Resolved]
  - Scar [Not Recovered/Not Resolved]
  - Crohn^s disease [Not Recovered/Not Resolved]
  - Intestinal resection [Unknown]
  - Gastrooesophageal reflux disease [Unknown]
  - Device issue [Unknown]
  - Blood pressure diastolic increased [Recovering/Resolving]
  - Abdominal adhesions [Unknown]
  - Pain [Unknown]
  - Nausea [Unknown]
  - Intestinal stenosis [Unknown]
  - Hypotension [Recovered/Resolved]
  - Inappropriate schedule of drug administration [Unknown]

NARRATIVE: CASE EVENT DATE: 2007
